FAERS Safety Report 14309067 (Version 4)
Quarter: 2018Q3

REPORT INFORMATION
  Report Type: Spontaneous
  Country: DE (occurrence: DE)
  Receive Date: 20171220
  Receipt Date: 20180723
  Transmission Date: 20181010
  Serious: Yes (Death, Hospitalization)
  Sender: FDA-Public Use
  Company Number: DE-DRREDDYS-GER/GER/17/0095280

PATIENT
  Age: 58 Year
  Sex: Female
  Weight: 75 kg

DRUGS (13)
  1. IBUPROFEN/PSEUDOEPHEDRINE [Concomitant]
     Dosage: AS REQUIRED
     Route: 048
  2. PERTUZUMAB. [Suspect]
     Active Substance: PERTUZUMAB
     Indication: HER-2 POSITIVE BREAST CANCER
     Dosage: LOADING DOSE
     Route: 042
     Dates: start: 20150727, end: 20150727
  3. PERTUZUMAB. [Suspect]
     Active Substance: PERTUZUMAB
     Dosage: MAINTAINENCE DOSE
     Route: 042
     Dates: start: 20150817, end: 20160202
  4. HERCEPTIN [Suspect]
     Active Substance: TRASTUZUMAB
     Indication: HER-2 POSITIVE BREAST CANCER
     Dosage: MAINTAINENCE DOSE
     Route: 042
     Dates: start: 20150817, end: 20160202
  5. IBUPROFEN. [Concomitant]
     Active Substance: IBUPROFEN
     Indication: PAIN
     Route: 048
  6. FENTANYL. [Concomitant]
     Active Substance: FENTANYL
     Indication: PAIN
     Dosage: DOSE: 75 MCG/H
  7. SEVREDOL [Concomitant]
     Active Substance: MORPHINE
     Indication: PAIN
     Dosage: AS REQUIRED
     Route: 048
  8. IBUPROFEN/PSEUDOEPHEDRINE [Concomitant]
     Indication: PAIN
     Dosage: AS REQUIRED
     Route: 048
  9. LYRICA [Concomitant]
     Active Substance: PREGABALIN
     Route: 048
  10. LYRICA [Concomitant]
     Active Substance: PREGABALIN
     Indication: POLYNEUROPATHY
     Route: 048
  11. DOCETAXEL. [Suspect]
     Active Substance: DOCETAXEL
     Indication: BREAST CANCER
     Dosage: 140 MG, TID
     Route: 042
     Dates: start: 20150727, end: 20151020
  12. SEVREDOL [Concomitant]
     Active Substance: MORPHINE
     Dosage: AS REQUIRED
     Route: 048
  13. HERCEPTIN [Suspect]
     Active Substance: TRASTUZUMAB
     Dosage: LOADING DOSE
     Route: 042
     Dates: start: 20150727

REACTIONS (2)
  - Death [Fatal]
  - Erysipelas [Fatal]

NARRATIVE: CASE EVENT DATE: 20150824
